FAERS Safety Report 7008096-8 (Version None)
Quarter: 2010Q3

REPORT INFORMATION
  Report Type: 
  Country: None (occurrence: None)
  Receive Date: 20100922
  Receipt Date: 20100909
  Transmission Date: 20110219
  Serious: Yes (Hospitalization, Other)
  Sender: FDA-Public Use
  Company Number: BR-US-EMD SERONO, INC.-7017496

PATIENT
  Sex: Female

DRUGS (15)
  1. REBIF [Suspect]
     Indication: SECONDARY PROGRESSIVE MULTIPLE SCLEROSIS
     Route: 058
     Dates: end: 20100803
  2. COPAXONE [Concomitant]
     Dates: start: 20100803
  3. METFORMIN [Concomitant]
     Indication: DIABETES MELLITUS
  4. GABAPENTIN [Concomitant]
  5. LASIX [Concomitant]
  6. ALDACTONE [Concomitant]
  7. RANITIDINE [Concomitant]
  8. ARADOIS [Concomitant]
  9. TEGRETOL [Concomitant]
  10. PREDNISONE [Concomitant]
  11. OLCADIL [Concomitant]
  12. PRISTIQ [Concomitant]
  13. CYCLOSPORINE [Concomitant]
  14. BURINAX [Concomitant]
  15. BUDESONIDE [Concomitant]

REACTIONS (11)
  - APNOEA [None]
  - BRADYCARDIA [None]
  - CHRONIC OBSTRUCTIVE PULMONARY DISEASE [None]
  - DYSPNOEA [None]
  - ERYTHEMA NODOSUM [None]
  - FACE OEDEMA [None]
  - HEART RATE IRREGULAR [None]
  - MULTIPLE SCLEROSIS RELAPSE [None]
  - OEDEMA PERIPHERAL [None]
  - SYNCOPE [None]
  - TACHYCARDIA [None]
